FAERS Safety Report 6470463-9 (Version None)
Quarter: 2009Q4

REPORT INFORMATION
  Report Type: 
  Country: None (occurrence: None)
  Receive Date: 20091201
  Receipt Date: 20091116
  Transmission Date: 20100525
  Serious: Yes (Hospitalization)
  Sender: FDA-Public Use
  Company Number: MIN-00552

PATIENT
  Age: 63 Year
  Sex: Male

DRUGS (1)
  1. MINOCYCLINE HCL [Suspect]
     Indication: BRONCHOPULMONARY ASPERGILLOSIS

REACTIONS (2)
  - CARDIAC VALVE DISEASE [None]
  - PIGMENTATION DISORDER [None]
